FAERS Safety Report 6131386-8 (Version None)
Quarter: 2009Q1

REPORT INFORMATION
  Report Type: 
  Country: None (occurrence: None)
  Receive Date: 20090325
  Receipt Date: 20080529
  Transmission Date: 20090719
  Serious: No
  Sender: FDA-Public Use
  Company Number: US-BRISTOL-MYERS SQUIBB COMPANY-14183776

PATIENT
  Age: 62 Year
  Sex: Male

DRUGS (2)
  1. ERBITUX [Suspect]
     Indication: COLON CANCER METASTATIC
     Route: 042
     Dates: start: 20060911, end: 20070514
  2. LORTAB [Concomitant]
     Dosage: 1 DOSAGE FORM = 7.5 (UNITS NOT SPECIFIED).

REACTIONS (1)
  - CONJUNCTIVITIS [None]
